FAERS Safety Report 6350309-X (Version None)
Quarter: 2009Q3

REPORT INFORMATION
  Report Type: 
  Country: None (occurrence: None)
  Receive Date: 20090911
  Receipt Date: 20090622
  Transmission Date: 20100115
  Serious: No
  Sender: FDA-Public Use
  Company Number: US-ABBOTT-07P-163-0360779-00

PATIENT
  Sex: Female
  Weight: 52.664 kg

DRUGS (10)
  1. HUMIRA [Suspect]
     Indication: RHEUMATOID ARTHRITIS
     Route: 058
     Dates: start: 20061101
  2. SULFASALAZINE [Concomitant]
     Indication: DRUG USE FOR UNKNOWN INDICATION
  3. NAPROXEN [Concomitant]
     Indication: DRUG USE FOR UNKNOWN INDICATION
     Route: 048
  4. SERTRALINE HYDROCHLORIDE [Concomitant]
     Indication: DRUG USE FOR UNKNOWN INDICATION
  5. ASPIRIN [Concomitant]
     Indication: DRUG USE FOR UNKNOWN INDICATION
     Route: 048
  6. OMEPRAZOLE [Concomitant]
     Indication: DRUG USE FOR UNKNOWN INDICATION
     Route: 048
  7. ATENOLOL [Concomitant]
     Indication: DRUG USE FOR UNKNOWN INDICATION
     Route: 048
  8. TRIAMTERENE [Concomitant]
     Indication: DRUG USE FOR UNKNOWN INDICATION
     Dosage: 37.5/25 MILLIGRAMS
     Route: 048
  9. LOVASTATIN [Concomitant]
     Indication: DRUG USE FOR UNKNOWN INDICATION
     Route: 048
  10. METHYLPHENIDATE HCL [Concomitant]
     Indication: DRUG USE FOR UNKNOWN INDICATION
     Route: 048

REACTIONS (3)
  - DRUG DELIVERY SYSTEM MALFUNCTION [None]
  - INCORRECT DOSE ADMINISTERED [None]
  - INJECTION SITE EXTRAVASATION [None]
